FAERS Safety Report 9619581 (Version 1)
Quarter: 2013Q4

REPORT INFORMATION
  Report Type: Spontaneous
  Country: US (occurrence: US)
  Receive Date: 20131014
  Receipt Date: 20131014
  Transmission Date: 20140711
  Serious: Yes (Hospitalization)
  Sender: FDA-Public Use
  Company Number: US-MALLINCKRODT-T201304523

PATIENT
  Sex: Male

DRUGS (15)
  1. OXYCODONE [Suspect]
     Indication: PAIN IN EXTREMITY
     Dosage: 5 MG, Q6H
     Route: 065
     Dates: start: 201308
  2. METFORMIN [Concomitant]
     Indication: DIABETES MELLITUS
     Dosage: UNK
  3. VANCOMYCIN [Concomitant]
     Indication: URINARY TRACT INFECTION
     Dosage: UNK
  4. FLOMAX                             /00889901/ [Concomitant]
     Indication: PROSTATOMEGALY
     Dosage: UNK
  5. LOPRESSOR [Concomitant]
     Indication: HYPERTENSION
     Dosage: UNK
  6. ZYLOPRIM [Concomitant]
     Indication: GOUT
     Dosage: UNK
  7. LISINOPRIL [Concomitant]
     Indication: HYPERTENSION
     Dosage: UNK
  8. FLAGYL                             /00012501/ [Concomitant]
     Indication: FUNGAL INFECTION
     Dosage: UNK
  9. ASPIRIN [Concomitant]
     Indication: PROPHYLAXIS
     Dosage: UNK
  10. ZOLOFT [Concomitant]
     Indication: DEPRESSION
     Dosage: UNK
  11. LASIX                              /00032601/ [Concomitant]
     Indication: FLUID RETENTION
     Dosage: UNK
  12. PROTONIX [Concomitant]
     Indication: ABDOMINAL DISCOMFORT
     Dosage: UNK
  13. LYRICA [Concomitant]
     Indication: DIABETIC NEUROPATHY
     Dosage: UNK
  14. REMERON [Concomitant]
     Indication: DEPRESSION
     Dosage: UNK
  15. MAGNESIUM [Concomitant]
     Indication: VITAMIN SUPPLEMENTATION
     Dosage: UNK

REACTIONS (3)
  - Hallucination [Recovered/Resolved]
  - Skin ulcer [Not Recovered/Not Resolved]
  - Body temperature increased [Recovered/Resolved]
